FAERS Safety Report 9630033 (Version 2)
Quarter: 2013Q4

REPORT INFORMATION
  Report Type: Spontaneous
  Country: US (occurrence: US)
  Receive Date: 20131017
  Receipt Date: 20131025
  Transmission Date: 20140711
  Serious: Yes (Other)
  Sender: FDA-Public Use
  Company Number: US-BAXTER-2013BAX040039

PATIENT
  Sex: Female

DRUGS (1)
  1. GAMMAGARD LIQUID [Suspect]
     Indication: IMMUNOGLOBULIN THERAPY
     Route: 042

REACTIONS (7)
  - Convulsion [Unknown]
  - Malaise [Unknown]
  - Energy increased [Unknown]
  - Pain [Unknown]
  - Skin burning sensation [Unknown]
  - Dry skin [Unknown]
  - Pain of skin [Unknown]
